FAERS Safety Report 11928450 (Version 2)
Quarter: 2016Q1

REPORT INFORMATION
  Report Type: Spontaneous
  Country: BR (occurrence: BR)
  Receive Date: 20160119
  Receipt Date: 20160202
  Transmission Date: 20160526
  Serious: Yes (Hospitalization, Other)
  Sender: FDA-Public Use
  Company Number: BR-ELI_LILLY_AND_COMPANY-BR201601002739

PATIENT
  Sex: Female
  Weight: 99 kg

DRUGS (4)
  1. HUMULIN R [Suspect]
     Active Substance: INSULIN HUMAN
     Dosage: 30 IU, QD
     Route: 058
  2. GLIFAGE [Concomitant]
     Active Substance: METFORMIN HYDROCHLORIDE
     Dosage: UNK, UNKNOWN
     Route: 065
  3. HUMULIN R [Suspect]
     Active Substance: INSULIN HUMAN
     Indication: DIABETES MELLITUS
     Dosage: 40 IU, EACH MORNING
     Route: 058
  4. AZUKON [Concomitant]
     Active Substance: GLICLAZIDE
     Dosage: 30 MG, UNKNOWN
     Route: 065

REACTIONS (4)
  - Glaucoma [Recovering/Resolving]
  - Diabetes mellitus inadequate control [Recovered/Resolved]
  - Arthropathy [Unknown]
  - Drug ineffective [Unknown]

NARRATIVE: CASE EVENT DATE: 2015
